FAERS Safety Report 17276711 (Version 1)
Quarter: 2020Q1

REPORT INFORMATION
  Report Type: Spontaneous
  Country: GB (occurrence: GB)
  Receive Date: 20200116
  Receipt Date: 20200116
  Transmission Date: 20200409
  Serious: Yes (Death)
  Sender: FDA-Public Use
  Company Number: GB-TEVA-2020-GB-1167228

PATIENT
  Age: 78 Year
  Sex: Female
  Weight: 63.5 kg

DRUGS (1)
  1. CAPECITABINE. [Suspect]
     Active Substance: CAPECITABINE
     Indication: PALLIATIVE CARE
     Dosage: UNSURE
     Route: 048
     Dates: start: 20190929, end: 20191006

REACTIONS (5)
  - Fungal infection [Fatal]
  - Lip haemorrhage [Fatal]
  - Mouth ulceration [Fatal]
  - Pharyngeal ulceration [Fatal]
  - Death [Fatal]

NARRATIVE: CASE EVENT DATE: 20191006
